FAERS Safety Report 4482248-3 (Version None)
Quarter: 2004Q4

REPORT INFORMATION
  Report Type: 
  Country: None (occurrence: None)
  Receive Date: 20041020
  Receipt Date: 20041008
  Transmission Date: 20050328
  Serious: Yes (Hospitalization)
  Sender: FDA-Public Use
  Company Number: 2004076857

PATIENT
  Age: 59 Year
  Sex: Female

DRUGS (7)
  1. TORVAST (ATORVASTATIN) [Suspect]
     Indication: HYPERTENSION
     Dosage: 10 MG (1 IN 1 D), ORAL
     Route: 048
     Dates: start: 20040802, end: 20040901
  2. CLONIDINE [Concomitant]
  3. OMEGA-3 TRIGLYCERIDES (OMEGA-3 TRIGLYCERIDES) [Concomitant]
  4. TICLOPIDINE HCL [Concomitant]
  5. LACIDIPINE (LACIDIPINE) [Concomitant]
  6. CANDESARTAN CILEXETIL (CANDESARTAN CILEXETIL) [Concomitant]
  7. PAROXETINE HCL [Concomitant]

REACTIONS (1)
  - HEPATOTOXICITY [None]
